FAERS Safety Report 5020468-X (Version None)
Quarter: 2006Q2

REPORT INFORMATION
  Report Type: 
  Country: None (occurrence: None)
  Receive Date: 20060607
  Receipt Date: 20060601
  Transmission Date: 20061013
  Serious: Yes (Hospitalization)
  Sender: FDA-Public Use
  Company Number: US-SANOFI-SYNTHELABO-A03200603500

PATIENT
  Age: 79 Year
  Sex: Female

DRUGS (2)
  1. ELOXATIN [Suspect]
     Indication: COLON CANCER
     Route: 042
     Dates: start: 20060510, end: 20060510
  2. COUMADIN [Concomitant]
     Dosage: UNK
     Route: 048

REACTIONS (3)
  - APNOEA [None]
  - CARDIO-RESPIRATORY ARREST [None]
  - MALAISE [None]
